FAERS Safety Report 9444200 (Version 1)
Quarter: 2013Q3

REPORT INFORMATION
  Report Type: Spontaneous
  Country: US (occurrence: None)
  Receive Date: 20130806
  Receipt Date: 20130806
  Transmission Date: 20140515
  Serious: Yes (Other)
  Sender: FDA-Public Use
  Company Number: None

PATIENT
  Age: 14 Year
  Sex: Male
  Weight: 52.1 kg

DRUGS (2)
  1. DEPAKOTE ER [Suspect]
     Dosage: 1 TABLET DAILY ORALLY
     Route: 048
     Dates: start: 201307
  2. DEPAKOTE ER [Suspect]
     Dosage: 1 TABLET DAILY ORALLY
     Route: 048

REACTIONS (4)
  - Convulsion [None]
  - Condition aggravated [None]
  - Product substitution issue [None]
  - Therapeutic response unexpected with drug substitution [None]
